FAERS Safety Report 16101427 (Version 1)
Quarter: 2019Q1

REPORT INFORMATION
  Report Type: Report from Study
  Country: IL (occurrence: IL)
  Receive Date: 20190321
  Receipt Date: 20190321
  Transmission Date: 20190418
  Serious: Yes (Other)
  Sender: FDA-Public Use
  Company Number: IL-ACCORD-113176

PATIENT
  Age: 58 Year
  Sex: Female

DRUGS (1)
  1. ZOLEDRONIC ACID [Suspect]
     Active Substance: ZOLEDRONIC ACID
     Indication: THYROID CANCER
     Dosage: IV, MONTHLY. NUMBER OF TREATMENT WAS 1
     Route: 042

REACTIONS (3)
  - Iridocyclitis [Recovered/Resolved]
  - Orbital oedema [Recovered/Resolved]
  - Scleritis [Recovered/Resolved]
